FAERS Safety Report 16210941 (Version 1)
Quarter: 2019Q2

REPORT INFORMATION
  Report Type: Spontaneous
  Country: US (occurrence: US)
  Receive Date: 20190417
  Receipt Date: 20190417
  Transmission Date: 20190711
  Serious: Yes (Life-Threatening, Hospitalization, Disabling)
  Sender: FDA-Public Use
  Company Number: None

PATIENT
  Age: 46 Year
  Sex: Female
  Weight: 83.25 kg

DRUGS (13)
  1. CLONAZEPAM. [Concomitant]
     Active Substance: CLONAZEPAM
  2. CATHEDAR [Concomitant]
  3. EXCEDRINE [Concomitant]
  4. BENADRYL [Concomitant]
     Active Substance: DIPHENHYDRAMINE HYDROCHLORIDE
  5. IBUPROPHEN [Concomitant]
     Active Substance: IBUPROFEN
  6. BUSPAR [Concomitant]
     Active Substance: BUSPIRONE HYDROCHLORIDE
  7. IMODIUM [Concomitant]
     Active Substance: LOPERAMIDE HYDROCHLORIDE
  8. PROMETHAZINE [Concomitant]
     Active Substance: PROMETHAZINE\PROMETHAZINE HYDROCHLORIDE
  9. BENLYSTA [Suspect]
     Active Substance: BELIMUMAB
     Indication: SYSTEMIC LUPUS ERYTHEMATOSUS
     Dosage: ?          QUANTITY:1.5 RECOM FOR 145LB;OTHER FREQUENCY:MONTHLY;OTHER ROUTE:INFUSION?
     Dates: start: 20131104, end: 20150302
  10. BACLOFEN. [Concomitant]
     Active Substance: BACLOFEN
  11. PEPTO-BISMOL [Concomitant]
     Active Substance: BISMUTH SUBSALICYLATE
  12. FLONASE [Concomitant]
     Active Substance: FLUTICASONE PROPIONATE
  13. ROLAIDS [Concomitant]
     Active Substance: CALCIUM CARBONATE\MAGNESIUM HYDROXIDE

REACTIONS (9)
  - Migraine [None]
  - Spinal cord compression [None]
  - Arthritis infective [None]
  - Vomiting [None]
  - Osteomyelitis [None]
  - Quadriplegia [None]
  - Respiratory arrest [None]
  - Localised infection [None]
  - Spinal disorder [None]

NARRATIVE: CASE EVENT DATE: 20150315
